FAERS Safety Report 7015872-4 (Version None)
Quarter: 2010Q3

REPORT INFORMATION
  Report Type: 
  Country: None (occurrence: None)
  Receive Date: 20100927
  Receipt Date: 20091217
  Transmission Date: 20110219
  Serious: No
  Sender: FDA-Public Use
  Company Number: US-ASTRAZENECA-2009SE32633

PATIENT
  Age: 910 Month
  Sex: Female

DRUGS (2)
  1. ARIMIDEX [Suspect]
     Indication: BREAST CANCER
     Route: 048
     Dates: start: 20041101, end: 20091114
  2. KLONOPIN [Concomitant]

REACTIONS (5)
  - APHASIA [None]
  - FATIGUE [None]
  - INCREASED UPPER AIRWAY SECRETION [None]
  - OROPHARYNGEAL PAIN [None]
  - PSYCHIATRIC SYMPTOM [None]
